FAERS Safety Report 9918045 (Version 2)
Quarter: 2014Q1

REPORT INFORMATION
  Report Type: Spontaneous
  Country: US (occurrence: US)
  Receive Date: 20140222
  Receipt Date: 20140222
  Transmission Date: 20141002
  Serious: Yes (Hospitalization, Disabling)
  Sender: FDA-Public Use
  Company Number: US-GE HEALTHCARE MEDICAL DIAGNOSTICS-OSCN-PR-0912S-0536

PATIENT
  Age: 65 Year
  Sex: Female

DRUGS (29)
  1. OMNISCAN [Suspect]
     Indication: PRODUCT USED FOR UNKNOWN INDICATION
     Dates: start: 19980929, end: 19980929
  2. OMNISCAN [Suspect]
     Indication: PRODUCT USED FOR UNKNOWN INDICATION
     Dates: start: 20060406, end: 20060406
  3. OMNISCAN [Suspect]
     Indication: PRODUCT USED FOR UNKNOWN INDICATION
  4. OMNISCAN [Suspect]
     Indication: PRODUCT USED FOR UNKNOWN INDICATION
  5. GADOLINIUM (UNSPECIFIED) [Suspect]
     Indication: PRODUCT USED FOR UNKNOWN INDICATION
     Dates: start: 19960627, end: 19960627
  6. GADOLINIUM (UNSPECIFIED) [Suspect]
     Dates: start: 20060406, end: 20060406
  7. MAGNEVIST [Suspect]
     Indication: PRODUCT USED FOR UNKNOWN INDICATION
     Dates: start: 19960627, end: 19960627
  8. MAGNEVIST [Suspect]
     Dates: start: 20020711, end: 20020711
  9. MAGNEVIST [Suspect]
     Dates: start: 20021105, end: 20021105
  10. MAGNEVIST [Suspect]
     Dates: start: 20021115, end: 20021115
  11. MAGNEVIST [Suspect]
     Dates: start: 20040316, end: 20040316
  12. MAGNEVIST [Suspect]
     Dates: start: 20060102, end: 20060102
  13. RENAGEL [Concomitant]
     Indication: PRODUCT USED FOR UNKNOWN INDICATION
  14. CALCITRIOL [Concomitant]
     Indication: PRODUCT USED FOR UNKNOWN INDICATION
  15. EPOGEN [Concomitant]
     Indication: ANAEMIA
     Dates: start: 19971216
  16. PHOSLO [Concomitant]
     Indication: PRODUCT USED FOR UNKNOWN INDICATION
  17. DOVONEX [Concomitant]
     Indication: PRODUCT USED FOR UNKNOWN INDICATION
  18. TRETINOIN [Concomitant]
  19. INFED [Concomitant]
     Indication: PRODUCT USED FOR UNKNOWN INDICATION
  20. PRILOSEC [Concomitant]
     Indication: PRODUCT USED FOR UNKNOWN INDICATION
  21. IRON [Concomitant]
     Indication: PRODUCT USED FOR UNKNOWN INDICATION
     Route: 042
  22. ARANESP [Concomitant]
     Indication: PRODUCT USED FOR UNKNOWN INDICATION
  23. COUMADIN [Concomitant]
     Indication: PRODUCT USED FOR UNKNOWN INDICATION
  24. ZEMPLAR [Concomitant]
     Indication: PRODUCT USED FOR UNKNOWN INDICATION
  25. FERRLECIT [Concomitant]
     Indication: PRODUCT USED FOR UNKNOWN INDICATION
  26. VENOFER [Concomitant]
     Indication: PRODUCT USED FOR UNKNOWN INDICATION
  27. SENSIPAR [Concomitant]
     Indication: PRODUCT USED FOR UNKNOWN INDICATION
  28. TOPROL XL [Concomitant]
     Indication: PRODUCT USED FOR UNKNOWN INDICATION
  29. KLONOPIN [Concomitant]
     Indication: FIBROMYALGIA

REACTIONS (1)
  - Nephrogenic systemic fibrosis [Not Recovered/Not Resolved]
